FAERS Safety Report 5889595-9 (Version None)
Quarter: 2008Q3

REPORT INFORMATION
  Report Type: 
  Country: None (occurrence: None)
  Receive Date: 20080919
  Receipt Date: 20080912
  Transmission Date: 20090109
  Serious: Yes (Hospitalization)
  Sender: FDA-Public Use
  Company Number: A0748268A

PATIENT
  Age: 46 Year
  Sex: Male
  Weight: 81.8 kg

DRUGS (7)
  1. AVANDIA [Suspect]
     Indication: DIABETES MELLITUS
     Dosage: 8MG TWICE PER DAY
     Route: 048
     Dates: start: 19990101, end: 20050801
  2. METFORMIN HCL [Concomitant]
  3. GLUCOTROL XL [Concomitant]
  4. METOPROLOL TARTRATE [Concomitant]
  5. BUPROPION HCL [Concomitant]
  6. LISINOPRIL [Concomitant]
  7. NEURONTIN [Concomitant]

REACTIONS (1)
  - MYOCARDIAL INFARCTION [None]
